FAERS Safety Report 6079209-X (Version None)
Quarter: 2009Q1

REPORT INFORMATION
  Report Type: 
  Country: None (occurrence: None)
  Receive Date: 20090216
  Receipt Date: 20090210
  Transmission Date: 20090719
  Serious: Yes (Hospitalization)
  Sender: FDA-Public Use
  Company Number: B0559019A

PATIENT
  Age: 83 Year
  Sex: Female

DRUGS (7)
  1. KREDEX [Suspect]
     Indication: DRUG USE FOR UNKNOWN INDICATION
     Dosage: 12.5MG TWICE PER DAY
     Route: 048
     Dates: start: 20040101
  2. COVERSYL [Suspect]
     Indication: DRUG USE FOR UNKNOWN INDICATION
     Dates: start: 20081207
  3. IMOVANE [Concomitant]
     Route: 065
     Dates: end: 20081207
  4. DUPHALAC [Concomitant]
     Dates: end: 20081207
  5. SPECIAFOLDINE [Concomitant]
     Dates: start: 20010101
  6. RISPERDAL [Concomitant]
     Dates: end: 20081202
  7. TERCIAN [Concomitant]
     Dates: start: 20010101, end: 20081207

REACTIONS (6)
  - DISTURBANCE IN ATTENTION [None]
  - ELECTROCARDIOGRAM QRS COMPLEX PROLONGED [None]
  - ELECTROCARDIOGRAM ST SEGMENT ELEVATION [None]
  - ESCHERICHIA URINARY TRACT INFECTION [None]
  - HYPERKALAEMIA [None]
  - HYPOTHERMIA [None]
